FAERS Safety Report 22592684 (Version 2)
Quarter: 2024Q4

REPORT INFORMATION
  Report Type: Spontaneous
  Country: JP (occurrence: JP)
  Receive Date: 20230613
  Receipt Date: 20241122
  Transmission Date: 20250115
  Serious: No
  Sender: CELLTRION
  Company Number: JP-CELLTRION INC.-2021JP005059

PATIENT

DRUGS (10)
  1. INFLIXIMAB [Suspect]
     Active Substance: INFLIXIMAB
     Indication: Crohn^s disease
     Dosage: 670 MG (WEIGHT: 67.3 KG)
     Route: 041
     Dates: start: 20181111, end: 20181111
  2. INFLIXIMAB [Suspect]
     Active Substance: INFLIXIMAB
     Dosage: 680 MG (WEIGHT: 67.8 KG)
     Route: 041
     Dates: start: 20190105, end: 20190105
  3. INFLIXIMAB [Suspect]
     Active Substance: INFLIXIMAB
     Dosage: 690 MG (WEIGHT: 69.1 KG)
     Route: 041
     Dates: start: 20190302, end: 20190302
  4. INFLIXIMAB [Suspect]
     Active Substance: INFLIXIMAB
     Dosage: 670 MG (WEIGHT:67.4 KG)
     Route: 041
     Dates: start: 20190504, end: 20190504
  5. INFLIXIMAB [Suspect]
     Active Substance: INFLIXIMAB
     Dosage: 650 MG (WEIGHT: 65 KG)
     Route: 041
     Dates: start: 20191026, end: 20191026
  6. INFLIXIMAB [Suspect]
     Active Substance: INFLIXIMAB
     Dosage: 670 MG (WEIGHT: 66.9 KG)
     Route: 041
     Dates: start: 20201121, end: 20201121
  7. INFLIXIMAB [Suspect]
     Active Substance: INFLIXIMAB
     Dosage: 670 MG (WEIGHT: 66.8 KG)
     Route: 041
     Dates: start: 20211113, end: 20211113
  8. INFLIXIMAB [Suspect]
     Active Substance: INFLIXIMAB
     Dosage: 660 MG (WEIGHT: 66.3 KG)
     Route: 041
     Dates: start: 20221030, end: 20221030
  9. INFLIXIMAB [Suspect]
     Active Substance: INFLIXIMAB
     Dosage: 670 MG (WEIGHT: 67.3 KG)
     Route: 041
     Dates: start: 20231224, end: 20231224
  10. MESALAMINE [Concomitant]
     Active Substance: MESALAMINE
     Dosage: 3000 MG/DAY
     Route: 048
     Dates: start: 20170717

REACTIONS (4)
  - Hand dermatitis [Unknown]
  - Headache [Not Recovered/Not Resolved]
  - Overdose [Unknown]
  - Intentional product use issue [Unknown]

NARRATIVE: CASE EVENT DATE: 20190302
